FAERS Safety Report 7879243-0 (Version None)
Quarter: 2011Q4

REPORT INFORMATION
  Report Type: 
  Country: None (occurrence: None)
  Receive Date: 20111101
  Receipt Date: 20111019
  Transmission Date: 20120403
  Serious: Yes (Other)
  Sender: FDA-Public Use
  Company Number: US-BAYER-2011-104575

PATIENT

DRUGS (2)
  1. RIVAROXABAN [Suspect]
     Dosage: DOSAGE FORM: TABLET
     Route: 048
  2. ACETYLSALICYLIC ACID SRT [Suspect]

REACTIONS (1)
  - HAEMATOMA [None]
